FAERS Safety Report 12176645 (Version 1)
Quarter: 2016Q1

REPORT INFORMATION
  Report Type: Spontaneous
  Country: US (occurrence: US)
  Receive Date: 20160314
  Receipt Date: 20160314
  Transmission Date: 20160526
  Serious: No
  Sender: FDA-Public Use
  Company Number: US-AKORN PHARMACEUTICALS-2016AKN00049

PATIENT
  Age: 49 Year
  Sex: Male
  Weight: 79.37 kg

DRUGS (2)
  1. UNSPECIFIED HEART MEDICATION [Concomitant]
     Active Substance: UNSPECIFIED INGREDIENT
  2. MYORISAN [Suspect]
     Active Substance: ISOTRETINOIN
     Indication: ROSACEA
     Dosage: 10 MG, 2X/DAY
     Route: 048
     Dates: start: 20160108

REACTIONS (2)
  - Product use issue [Unknown]
  - Rosacea [Recovering/Resolving]

NARRATIVE: CASE EVENT DATE: 201601
